FAERS Safety Report 4823651-9 (Version None)
Quarter: 2005Q4

REPORT INFORMATION
  Report Type: 
  Country: None (occurrence: None)
  Receive Date: 20051109
  Receipt Date: 20051031
  Transmission Date: 20060501
  Serious: Yes (Hospitalization)
  Sender: FDA-Public Use
  Company Number: FR-GLAXOSMITHKLINE-B0399101A

PATIENT
  Age: 39 Year
  Sex: Female
  Weight: 60 kg

DRUGS (5)
  1. ZOVIRAX [Suspect]
     Dosage: 800MG PER DAY
     Route: 048
     Dates: end: 20050607
  2. IMOVANE [Suspect]
     Dosage: 7.5MG PER DAY
     Route: 048
     Dates: end: 20050607
  3. XANAX [Suspect]
     Dosage: 750MCG PER DAY
     Route: 048
     Dates: end: 20050607
  4. LEVOTHYROX [Suspect]
     Indication: HYPOTHYROIDISM
     Dosage: 125MCG PER DAY
     Route: 048
  5. TERCIAN [Concomitant]
     Route: 065
     Dates: start: 20050607

REACTIONS (4)
  - DELIRIUM [None]
  - HALLUCINATION [None]
  - MANIA [None]
  - PSYCHOMOTOR HYPERACTIVITY [None]
